FAERS Safety Report 7362954 (Version 2)
Quarter: 2020Q3

REPORT INFORMATION
  Report Type: Report from Study
  Country: US (occurrence: US)
  Receive Date: 20100422
  Receipt Date: 20100510
  Transmission Date: 20201104
  Serious: Yes (Other)
  Sender: FDA-Public Use
  Company Number: US-ROCHE-698226

PATIENT
  Age: 75 Year
  Sex: Female
  Weight: 47.6 kg

DRUGS (4)
  1. ASPIRIN. [Concomitant]
     Active Substance: ASPIRIN
  2. IBANDRONIC ACID. [Suspect]
     Active Substance: IBANDRONIC ACID
     Indication: OSTEOPOROSIS
     Dosage: RECEIVED FOR 2?3 YEARS.
     Route: 048
  3. OSCAL [Concomitant]
     Active Substance: CALCIUM CARBONATE
  4. EVISTA [Concomitant]
     Active Substance: RALOXIFENE HYDROCHLORIDE

REACTIONS (6)
  - Joint range of motion decreased [Not Recovered/Not Resolved]
  - Abdominal pain upper [Unknown]
  - Bone pain [Unknown]
  - Tooth extraction [Unknown]
  - Abdominal discomfort [Unknown]
  - Pain in jaw [Not Recovered/Not Resolved]

NARRATIVE: CASE EVENT DATE: 20080101
